FAERS Safety Report 14656303 (Version 2)
Quarter: 2018Q2

REPORT INFORMATION
  Report Type: Spontaneous
  Country: US (occurrence: US)
  Receive Date: 20180319
  Receipt Date: 20180501
  Transmission Date: 20180711
  Serious: No
  Sender: FDA-Public Use
  Company Number: US-BIOMARINAP-US-2018-117135

PATIENT
  Sex: Male
  Weight: 44.7 kg

DRUGS (1)
  1. VIMIZIM [Suspect]
     Active Substance: ELOSULFASE ALFA
     Indication: PRODUCT USED FOR UNKNOWN INDICATION
     Dosage: 90 MG, QW
     Route: 042
     Dates: start: 20180123

REACTIONS (3)
  - Catheter site scar [Not Recovered/Not Resolved]
  - Drug dose omission [Recovered/Resolved]
  - Vascular access complication [Recovered/Resolved]
